FAERS Safety Report 11200636 (Version 1)
Quarter: 2015Q2

REPORT INFORMATION
  Report Type: Spontaneous
  Country: US (occurrence: US)
  Receive Date: 20150618
  Receipt Date: 20150618
  Transmission Date: 20150821
  Serious: Yes (Death)
  Sender: FDA-Public Use
  Company Number: US-ENDO PHARMACEUTICALS INC.-201403099

PATIENT
  Age: 61 Year
  Sex: Male

DRUGS (8)
  1. BUPROPION [Concomitant]
     Active Substance: BUPROPION
  2. TESTIM [Suspect]
     Active Substance: TESTOSTERONE
     Indication: HORMONE REPLACEMENT THERAPY
     Route: 062
     Dates: start: 20120430, end: 20130322
  3. LOSARTAN [Concomitant]
     Active Substance: LOSARTAN
  4. SUBOXONE [Concomitant]
     Active Substance: BUPRENORPHINE HYDROCHLORIDE\NALOXONE HYDROCHLORIDE
  5. DILTIAZEM HYDROCHLORIDE EXTENDED RELEASE [Concomitant]
     Active Substance: DILTIAZEM HYDROCHLORIDE
  6. NUVIGIL [Concomitant]
     Active Substance: ARMODAFINIL
  7. ATORVASTATIN [Concomitant]
     Active Substance: ATORVASTATIN
  8. VYVANSE [Concomitant]
     Active Substance: LISDEXAMFETAMINE DIMESYLATE

REACTIONS (6)
  - Abdominal pain [Recovered/Resolved]
  - Constipation [Recovered/Resolved]
  - Hyperlipidaemia [Fatal]
  - Urinary retention [Recovered/Resolved]
  - Hypertensive heart disease [Fatal]
  - Myocardial infarction [Fatal]

NARRATIVE: CASE EVENT DATE: 20130321
